FAERS Safety Report 5491125-0 (Version None)
Quarter: 2007Q4

REPORT INFORMATION
  Report Type: 
  Country: None (occurrence: None)
  Receive Date: 20071019
  Receipt Date: 20071002
  Transmission Date: 20080405
  Serious: Yes (Hospitalization)
  Sender: FDA-Public Use
  Company Number: GB-PFIZER INC-2007077303

PATIENT
  Sex: Male

DRUGS (3)
  1. IRINOTECAN HCL [Suspect]
     Route: 042
  2. ATROPINE [Suspect]
  3. PANITUMUMAB [Suspect]
     Indication: COLORECTAL CANCER
     Route: 042

REACTIONS (5)
  - DIZZINESS [None]
  - HYPERSENSITIVITY [None]
  - HYPERTENSION [None]
  - SPEECH DISORDER [None]
  - VOMITING [None]
